FAERS Safety Report 21223978 (Version 2)
Quarter: 2022Q4

REPORT INFORMATION
  Report Type: Spontaneous
  Country: DE (occurrence: DE)
  Receive Date: 20220817
  Receipt Date: 20221014
  Transmission Date: 20230113
  Serious: Yes (Other)
  Sender: FDA-Public Use
  Company Number: DE-GSKCCFEMEA-Case-01552801_AE-61127

PATIENT

DRUGS (4)
  1. LAMICTAL [Suspect]
     Active Substance: LAMOTRIGINE
     Indication: Epilepsy
     Dosage: 150 MG
  2. LAMICTAL [Suspect]
     Active Substance: LAMOTRIGINE
     Dosage: 200 MG
  3. SULTHIAME [Concomitant]
     Active Substance: SULTHIAME
     Dosage: 75 MG (2 X 75 MG)
     Dates: start: 201408, end: 201712
  4. SULTHIAME [Concomitant]
     Active Substance: SULTHIAME
     Dosage: 175 (2 X 175 MG)
     Dates: start: 201408, end: 201712

REACTIONS (3)
  - Systemic lupus erythematosus [Unknown]
  - Headache [Unknown]
  - Dizziness [Unknown]

NARRATIVE: CASE EVENT DATE: 20211101
